FAERS Safety Report 15207432 (Version 1)
Quarter: 2018Q3

REPORT INFORMATION
  Report Type: Spontaneous
  Country: AU (occurrence: AU)
  Receive Date: 20180727
  Receipt Date: 20180727
  Transmission Date: 20181010
  Serious: Yes (Death)
  Sender: FDA-Public Use
  Company Number: PHHY2018AU050982

PATIENT
  Age: 71 Year
  Sex: Male

DRUGS (1)
  1. PREDNISONE. [Suspect]
     Active Substance: PREDNISONE
     Indication: PRODUCT USED FOR UNKNOWN INDICATION
     Dosage: 20 MG, QD
     Route: 065

REACTIONS (7)
  - Rash [Fatal]
  - Condition aggravated [Fatal]
  - Varicella zoster virus infection [Fatal]
  - Cardiac arrest [Fatal]
  - Upper respiratory tract infection [Fatal]
  - Encephalitis [Fatal]
  - Respiratory failure [Fatal]
